FAERS Safety Report 8060724-4 (Version None)
Quarter: 2012Q1

REPORT INFORMATION
  Report Type: 
  Country: None (occurrence: None)
  Receive Date: 20120120
  Receipt Date: 20120113
  Transmission Date: 20120608
  Serious: Yes (Other)
  Sender: FDA-Public Use
  Company Number: FR-B.I. PHARMACEUTICALS,INC./RIDGEFIELD-2012-FF-00052FF

PATIENT
  Sex: Male

DRUGS (6)
  1. VIRAMUNE [Suspect]
     Indication: HIV INFECTION
     Dosage: 400 MG
     Route: 048
     Dates: start: 20111201, end: 20111223
  2. CRESTOR [Suspect]
     Route: 048
     Dates: start: 20090301, end: 20111223
  3. TRUVADA [Concomitant]
     Indication: HIV INFECTION
     Dosage: 200 MG/245 MG
     Route: 048
     Dates: start: 20090401, end: 20111223
  4. ASPIRIN [Concomitant]
     Dates: start: 20110201
  5. NORVIR [Concomitant]
     Indication: HIV INFECTION
     Dates: start: 20110201
  6. DILTIAZEM HCL [Concomitant]
     Dates: start: 20110201

REACTIONS (2)
  - MIXED LIVER INJURY [None]
  - RENAL COLIC [None]
